FAERS Safety Report 9183023 (Version 1)
Quarter: 2013Q1

REPORT INFORMATION
  Report Type: Spontaneous
  Country: US (occurrence: US)
  Receive Date: 20130322
  Receipt Date: 20130322
  Transmission Date: 20140127
  Serious: Yes (Hospitalization)
  Sender: FDA-Public Use
  Company Number: US-BRISTOL-MYERS SQUIBB COMPANY-17011636

PATIENT
  Age: 69 Year
  Sex: Female

DRUGS (1)
  1. ERBITUX [Suspect]
     Dosage: ERBITUX WEEKLY SINCE JLUY 2ND AND ON SEPTEMBER 25TH

REACTIONS (1)
  - Renal failure [Unknown]
